FAERS Safety Report 9949125 (Version 1)
Quarter: 2014Q1

REPORT INFORMATION
  Report Type: Report from Study
  Country: US (occurrence: US)
  Receive Date: 20140304
  Receipt Date: 20140304
  Transmission Date: 20141002
  Serious: Yes (Other)
  Sender: FDA-Public Use
  Company Number: US-ROCHE-1354367

PATIENT
  Age: 55 Year
  Sex: Female
  Weight: 60.84 kg

DRUGS (5)
  1. HERCEPTIN [Suspect]
     Indication: BREAST CANCER
     Route: 065
     Dates: start: 200705, end: 200804
  2. HERCEPTIN [Suspect]
     Indication: BREAST CANCER METASTATIC
     Route: 065
     Dates: start: 20131226
  3. PERJETA [Suspect]
     Indication: BREAST CANCER METASTATIC
     Route: 065
     Dates: start: 20131226
  4. TAXOL [Concomitant]
     Indication: BREAST CANCER
     Dosage: STOPPED 12 WEEKS LATER
     Route: 065
     Dates: start: 200705
  5. TAXOL [Concomitant]
     Indication: BREAST CANCER METASTATIC
     Route: 065
     Dates: start: 20131226

REACTIONS (6)
  - Metastasis [Not Recovered/Not Resolved]
  - Diarrhoea [Not Recovered/Not Resolved]
  - Nausea [Not Recovered/Not Resolved]
  - Fatigue [Not Recovered/Not Resolved]
  - Alopecia [Not Recovered/Not Resolved]
  - Neuropathy peripheral [Not Recovered/Not Resolved]
